FAERS Safety Report 24276478 (Version 3)
Quarter: 2025Q3

REPORT INFORMATION
  Report Type: Report from Study
  Country: EU (occurrence: EU)
  Receive Date: 20240903
  Receipt Date: 20250707
  Transmission Date: 20251020
  Serious: No
  Sender: EMD SERONO INC
  Company Number: EU-Merck Healthcare KGaA-2024045959

PATIENT
  Age: 81 Year
  Sex: Female
  Weight: 80 kg

DRUGS (2)
  1. TEPOTINIB [Suspect]
     Active Substance: TEPOTINIB
     Indication: Non-small cell lung cancer
  2. AMLODIPINE [Concomitant]
     Active Substance: AMLODIPINE BESYLATE
     Indication: Product used for unknown indication

REACTIONS (2)
  - Diarrhoea [Unknown]
  - Oedema [Unknown]
